FAERS Safety Report 22871437 (Version 5)
Quarter: 2023Q4

REPORT INFORMATION
  Report Type: Report from Study
  Country: US (occurrence: US)
  Receive Date: 20230828
  Receipt Date: 20231211
  Transmission Date: 20240110
  Serious: Yes (Other)
  Sender: FDA-Public Use
  Company Number: US-ACADIA PHARMACEUTICALS INC.-ACA-2023-TRF-003306

PATIENT
  Age: 36 Year
  Sex: Female

DRUGS (25)
  1. DAYBUE [Suspect]
     Active Substance: TROFINETIDE
     Indication: Rett syndrome
     Dosage: 50 MILLILITER, BID VIA G-TUBE
     Dates: start: 20230620, end: 20230726
  2. DAYBUE [Suspect]
     Active Substance: TROFINETIDE
     Dosage: 25 MILLILITER, QD VIA G-TUBE
     Dates: start: 20230801
  3. DAYBUE [Suspect]
     Active Substance: TROFINETIDE
     Dosage: 40 MILLILITER, QD VIA G-TUBE
  4. DAYBUE [Suspect]
     Active Substance: TROFINETIDE
     Dosage: 50 MILLILITER, QD VIA G-TUBE
     Dates: start: 20230920
  5. LO LOESTRIN FE [Concomitant]
     Active Substance: ETHINYL ESTRADIOL\NORETHINDRONE ACETATE
     Dosage: 1 TAB DAILY VIA G-TUBE
  6. ALBUTEROL [Concomitant]
     Active Substance: ALBUTEROL
     Indication: Cough
     Dosage: 0.083%, 2.5 MG, 3 ML, Q6HR
  7. ALBUTEROL [Concomitant]
     Active Substance: ALBUTEROL
     Indication: Nasal congestion
  8. ALBUTEROL [Concomitant]
     Active Substance: ALBUTEROL
     Indication: Wheezing
  9. CHILDRENS IBUPROFEN [Concomitant]
     Active Substance: IBUPROFEN
     Indication: Pain
     Dosage: 20 ML PER PEG TUBE Q8HR,PRN
  10. CHILDRENS TYLENOL [Concomitant]
     Active Substance: ACETAMINOPHEN
  11. CALCIUM CARBONATE [Concomitant]
     Active Substance: CALCIUM CARBONATE
     Dosage: 648 MG, 2 TABLETS CRUSHED AND ADMINISTERED THROUGH G TUBE DAILY
  12. VITAMIN D3 [Concomitant]
     Active Substance: CHOLECALCIFEROL
  13. DIABETISOURCE [Concomitant]
  14. ROPINIROLE [Concomitant]
     Active Substance: ROPINIROLE
     Dosage: 0.5 MG, 1 TABLET, G-TUBE, DAILY
  15. NAYZILAM [Concomitant]
     Active Substance: MIDAZOLAM
     Indication: Seizure
     Dosage: 5 MG, NASAL, ONCE, 1 SPRAY IN NOSTRIL AT ONSET OF SEIZURE LASTING LONGER THAN 3 MINUTES MAY REPEAT O
  16. IMODIUM A-D [Concomitant]
     Active Substance: LOPERAMIDE HYDROCHLORIDE
     Indication: Diarrhoea
     Dosage: 1 MG/7.5 ML, 2 MG/15 ML, ORAL, TID, MAY USE BY G TUBE ADMINISTRATION UPTO THREE TIMES DAILY
  17. FERROUS SULFATE [Concomitant]
     Active Substance: FERROUS SULFATE
     Dosage: 325 MILLIGRAM, QD
  18. ESOMEPRAZOLE [Concomitant]
     Active Substance: ESOMEPRAZOLE
     Dosage: 40 MG DOSE PER PEG TUBE DAILY 30 MINUTES PRIOR TO A MEAL TIME DAILY
  19. CHOLECALCIFEROL [Concomitant]
     Active Substance: CHOLECALCIFEROL
     Dosage: 400 INTL UNITS/ML, 2.5M1 PER G TUBE DAILY
  20. GUAIFENESIN [Concomitant]
     Active Substance: GUAIFENESIN
     Indication: Pulmonary congestion
     Dosage: 100 MG/5ML, 120 MG = 6 ML, PEG, BID, USE BID PRN
  21. ACETAMINOPHEN [Concomitant]
     Active Substance: ACETAMINOPHEN
     Indication: Pyrexia
     Dosage: 160 MG/5 ML, 20 ML, PER PEG TUBE Q6HR
  22. LAMICTAL [Concomitant]
     Active Substance: LAMOTRIGINE
     Dosage: 100 MILLIGRAM VIA G-TUBE, QAM
  23. LAMICTAL [Concomitant]
     Active Substance: LAMOTRIGINE
     Dosage: 75 MILLIGRAM, 3 TABLETS VIA G TUBE BED TIME
  24. PHILLIPS COLON HEALTH [Concomitant]
     Dosage: 1 CAPSULE VIA G-TUBE DAILY
  25. LORAZEPAM [Concomitant]
     Active Substance: LORAZEPAM
     Indication: Anxiety
     Dosage: 1 MILLIGRAM VIA G-TUBE Q6HR, PRN

REACTIONS (9)
  - Pneumonia [Recovered/Resolved]
  - Dyspepsia [Not Recovered/Not Resolved]
  - Product dose omission issue [Recovered/Resolved]
  - Underdose [Unknown]
  - Inappropriate schedule of product administration [Not Recovered/Not Resolved]
  - Dyspepsia [Recovered/Resolved]
  - Diarrhoea [Recovered/Resolved]
  - Diarrhoea [Recovering/Resolving]
  - Diarrhoea [Recovering/Resolving]

NARRATIVE: CASE EVENT DATE: 20230706
